FAERS Safety Report 4872220-3 (Version None)
Quarter: 2006Q1

REPORT INFORMATION
  Report Type: 
  Country: None (occurrence: None)
  Receive Date: 20060104
  Receipt Date: 20051214
  Transmission Date: 20060701
  Serious: Yes (Hospitalization, Other)
  Sender: FDA-Public Use
  Company Number: JP-NOVOPROD-249418

PATIENT
  Age: 75 Year
  Sex: Female
  Weight: 44 kg

DRUGS (4)
  1. PENFILL R CHU [Suspect]
     Indication: INSULIN-REQUIRING TYPE II DIABETES MELLITUS
     Dosage: 17 IU, QD
     Route: 058
     Dates: start: 20051014
  2. PENFILL R CHU [Suspect]
     Dosage: 11-26 IU, QD
     Route: 058
     Dates: start: 20050715
  3. TELMISARTAN [Concomitant]
     Dosage: 20 MG, UNK
     Dates: start: 20050413
  4. ATORVASTATIN [Concomitant]
     Dosage: 5 MG, UNK
     Route: 048
     Dates: start: 20050413

REACTIONS (2)
  - POLYARTHRITIS [None]
  - PYREXIA [None]
